FAERS Safety Report 15804115 (Version 1)
Quarter: 2019Q1

REPORT INFORMATION
  Report Type: Spontaneous
  Country: DE (occurrence: DE)
  Receive Date: 20190109
  Receipt Date: 20190109
  Transmission Date: 20190417
  Serious: Yes (Life-Threatening, Hospitalization)
  Sender: FDA-Public Use
  Company Number: DE-ANIPHARMA-2019-DE-000001

PATIENT
  Age: 67 Year
  Sex: Male
  Weight: 80 kg

DRUGS (3)
  1. CAPECITABINE. [Suspect]
     Active Substance: CAPECITABINE
     Dosage: 1000 MG DAILY
     Route: 048
     Dates: start: 201807
  2. JARDIANCE [Suspect]
     Active Substance: EMPAGLIFLOZIN
     Dosage: 10 MG DAILY
     Route: 048
     Dates: start: 201806, end: 20181127
  3. CANDESARTAN. [Suspect]
     Active Substance: CANDESARTAN
     Indication: HYPERTENSION
     Dosage: .5 DF DAILY
     Route: 048

REACTIONS (6)
  - Ketoacidosis [Recovered/Resolved]
  - General physical health deterioration [Unknown]
  - Altered state of consciousness [Recovered/Resolved]
  - Restlessness [Unknown]
  - Kussmaul respiration [Unknown]
  - Somnolence [Unknown]

NARRATIVE: CASE EVENT DATE: 20181127
